FAERS Safety Report 21740858 (Version 1)
Quarter: 2022Q4

REPORT INFORMATION
  Report Type: Spontaneous
  Country: US (occurrence: US)
  Receive Date: 20221216
  Receipt Date: 20221216
  Transmission Date: 20230113
  Serious: No
  Sender: FDA-Public Use
  Company Number: US-REGENERON PHARMACEUTICALS, INC.-2022-151745

PATIENT
  Sex: Female

DRUGS (1)
  1. EYLEA [Suspect]
     Active Substance: AFLIBERCEPT
     Indication: Macular degeneration
     Dosage: 2 MG, IN LEFT EYE
     Dates: start: 20220513

REACTIONS (2)
  - Product dose omission issue [Unknown]
  - Procedural pain [Unknown]

NARRATIVE: CASE EVENT DATE: 20221117
